FAERS Safety Report 18267082 (Version 1)
Quarter: 2020Q3

REPORT INFORMATION
  Report Type: Spontaneous
  Country: US (occurrence: US)
  Receive Date: 20200915
  Receipt Date: 20200915
  Transmission Date: 20201103
  Serious: No
  Sender: FDA-Public Use
  Company Number: US-ELI_LILLY_AND_COMPANY-US202009006079

PATIENT
  Sex: Female

DRUGS (3)
  1. LETROZOLE. [Concomitant]
     Active Substance: LETROZOLE
  2. VERZENIO [Suspect]
     Active Substance: ABEMACICLIB
     Indication: BREAST CANCER STAGE IV
     Dosage: UNK UNK, UNKNOWN
     Route: 065
  3. DENOSUMAB [Concomitant]
     Active Substance: DENOSUMAB

REACTIONS (1)
  - Diarrhoea [Unknown]
